FAERS Safety Report 4283554-8 (Version None)
Quarter: 2004Q1

REPORT INFORMATION
  Report Type: 
  Country: None (occurrence: None)
  Receive Date: 20040121
  Receipt Date: 20031020
  Transmission Date: 20041129
  Serious: Yes (Other)
  Sender: FDA-Public Use
  Company Number: A03200302507

PATIENT
  Age: 61 Year
  Sex: Female
  Weight: 73.0291 kg

DRUGS (5)
  1. PLAVIX [Suspect]
     Indication: STENT PLACEMENT
     Dosage: 75 MG QD - ORAL
     Dates: start: 20030922, end: 20031016
  2. ACETYLSALICYLIC ACID SRT [Concomitant]
  3. FAMOTIDINE [Concomitant]
  4. FUROSEMIDE [Concomitant]
  5. POTASSIUM [Concomitant]

REACTIONS (3)
  - CONTUSION [None]
  - OROPHARYNGEAL SWELLING [None]
  - RASH PRURITIC [None]
